FAERS Safety Report 18069578 (Version 3)
Quarter: 2020Q3

REPORT INFORMATION
  Report Type: Spontaneous
  Country: US (occurrence: US)
  Receive Date: 20200726
  Receipt Date: 20200814
  Transmission Date: 20201103
  Serious: Yes (Death, Life-Threatening, Other)
  Sender: FDA-Public Use
  Company Number: US-GILEAD-2020-0485585

PATIENT
  Age: 50 Year
  Sex: Male
  Weight: 145.5 kg

DRUGS (19)
  1. REMDESIVIR. [Suspect]
     Active Substance: REMDESIVIR
     Indication: COVID-19
     Dosage: 200 MG, ONCE
     Route: 042
     Dates: start: 20200717, end: 20200717
  2. KETAMINE [Concomitant]
     Active Substance: KETAMINE
  3. CHOLECALCIFEROL [Concomitant]
     Active Substance: CHOLECALCIFEROL
  4. AZITHROMYCIN ANHYDROUS. [Concomitant]
     Active Substance: AZITHROMYCIN ANHYDROUS
  5. CEFTRIAXONE. [Concomitant]
     Active Substance: CEFTRIAXONE
  6. DEXMEDETOMIDINE. [Concomitant]
     Active Substance: DEXMEDETOMIDINE
  7. GABAPENTIN. [Concomitant]
     Active Substance: GABAPENTIN
  8. CISATRACURIUM. [Concomitant]
     Active Substance: CISATRACURIUM
  9. PANTOPRAZOLE [Concomitant]
     Active Substance: PANTOPRAZOLE
  10. NOREPINEPHRINE. [Concomitant]
     Active Substance: NOREPINEPHRINE
  11. ENOXAPARIN [Concomitant]
     Active Substance: ENOXAPARIN
  12. ZINC. [Concomitant]
     Active Substance: ZINC
  13. FENTANYL. [Concomitant]
     Active Substance: FENTANYL
  14. ROSUVASTATIN. [Concomitant]
     Active Substance: ROSUVASTATIN
  15. ASPIRIN [ACETYLSALICYLIC ACID] [Concomitant]
     Active Substance: ASPIRIN
  16. REMDESIVIR. [Suspect]
     Active Substance: REMDESIVIR
     Dosage: 100 MG, QD
     Route: 042
     Dates: start: 20200718, end: 20200721
  17. DEXAMETHASONE. [Concomitant]
     Active Substance: DEXAMETHASONE
  18. VITAMIN C [Concomitant]
     Active Substance: ASCORBIC ACID
  19. PROPOFOL. [Concomitant]
     Active Substance: PROPOFOL

REACTIONS (5)
  - Shock [Not Recovered/Not Resolved]
  - Acute respiratory distress syndrome [Not Recovered/Not Resolved]
  - Death [Fatal]
  - Acute kidney injury [Not Recovered/Not Resolved]
  - Multiple organ dysfunction syndrome [Not Recovered/Not Resolved]

NARRATIVE: CASE EVENT DATE: 20200721
